FAERS Safety Report 9238726 (Version 1)
Quarter: 2013Q1

REPORT INFORMATION
  Report Type: Spontaneous
  Country: US (occurrence: None)
  Receive Date: 20121106
  Receipt Date: 20121106
  Transmission Date: 20140127
  Serious: No
  Sender: FDA-Public Use
  Company Number: 1000037226

PATIENT
  Age: 84 Year
  Sex: Male

DRUGS (8)
  1. DALIRESP [Suspect]
     Indication: EMPHYSEMA
     Dates: start: 20120714
  2. ADVAIR (SERTIDE) (SERTIDE) [Concomitant]
  3. SPIRIVA (TIOTRPOIUM BROMIDE) (TIOTROPIUM BROMIDE) [Concomitant]
  4. ARMOUR THYROID (THYROID) (THYROID) [Concomitant]
  5. AMLODIPINE (AMLODIPINE) (AMLODIPINE) [Concomitant]
  6. COREG (CARVEDILOL) (CARVEDILOL) [Concomitant]
  7. PLAVIX (CLOPIDGOGREL BISULFATE) (CLOPIDGREL BISULFATE) [Concomitant]
  8. SIMVASTATIN (SIMVASTATIN) [Concomitant]

REACTIONS (1)
  - Diarrhoea [None]
